FAERS Safety Report 5995363-X (Version None)
Quarter: 2008Q4

REPORT INFORMATION
  Report Type: 
  Country: None (occurrence: None)
  Receive Date: 20081212
  Receipt Date: 20080929
  Transmission Date: 20090506
  Serious: No
  Sender: FDA-Public Use
  Company Number: US-ABBOTT-08P-163-0478656-00

PATIENT
  Sex: Female
  Weight: 71.278 kg

DRUGS (3)
  1. HUMIRA [Suspect]
     Indication: RHEUMATOID ARTHRITIS
     Route: 058
     Dates: start: 20080501
  2. OXYCODONE HCL [Concomitant]
     Indication: PAIN
     Dosage: FOUR TIMES DAILY
     Route: 048
     Dates: start: 20080501
  3. PREDNISONE TAB [Concomitant]
     Indication: RHEUMATOID ARTHRITIS
     Route: 048
     Dates: start: 20080101

REACTIONS (3)
  - MEDICAL DEVICE COMPLICATION [None]
  - NASOPHARYNGITIS [None]
  - TOOTH INFECTION [None]
